FAERS Safety Report 7225973-3 (Version None)
Quarter: 2011Q1

REPORT INFORMATION
  Report Type: 
  Country: None (occurrence: None)
  Receive Date: 20110113
  Receipt Date: 20110106
  Transmission Date: 20110831
  Serious: Yes (Hospitalization)
  Sender: FDA-Public Use
  Company Number: FR-PFIZER INC-2010121352

PATIENT
  Age: 54 Year
  Sex: Female

DRUGS (13)
  1. ACUPAN [Suspect]
     Dosage: UNK
     Route: 051
     Dates: start: 20100602, end: 20100603
  2. LOVENOX [Suspect]
     Dosage: UNK
     Dates: start: 20100603, end: 20100620
  3. XANAX [Suspect]
     Dosage: UNK
     Route: 048
     Dates: start: 20100612, end: 20100613
  4. DAFALGAN [Suspect]
     Dosage: UNK
     Route: 048
     Dates: start: 20100612, end: 20100621
  5. TOPALGIC [Suspect]
     Dosage: UNK
     Route: 042
     Dates: start: 20100610, end: 20100611
  6. PROFENID [Suspect]
     Dosage: UNK
     Route: 051
     Dates: start: 20100602, end: 20100603
  7. PARACETAMOL [Suspect]
     Dosage: UNK
     Route: 051
     Dates: start: 20100602, end: 20100612
  8. SPASFON [Suspect]
     Dosage: UNK
     Route: 051
     Dates: start: 20100603, end: 20100618
  9. TOPALGIC [Suspect]
     Dosage: UNK
     Route: 042
     Dates: start: 20100603, end: 20100608
  10. METRONIDAZOLE [Suspect]
     Dosage: 0.5 %, UNK
     Route: 042
     Dates: start: 20100605, end: 20100616
  11. INIPOMP [Suspect]
     Dosage: 40 MG, UNK
     Route: 042
     Dates: start: 20100602, end: 20100606
  12. ROCEPHIN [Suspect]
     Dosage: UNK
     Route: 051
     Dates: start: 20100605, end: 20100616
  13. NEXIUM [Suspect]
     Dosage: UNK
     Route: 048
     Dates: start: 20100606, end: 20100623

REACTIONS (1)
  - TOXIC EPIDERMAL NECROLYSIS [None]
